FAERS Safety Report 20905005 (Version 1)
Quarter: 2022Q2

REPORT INFORMATION
  Report Type: Spontaneous
  Country: US (occurrence: None)
  Receive Date: 20220601
  Receipt Date: 20220601
  Transmission Date: 20220721
  Serious: Yes (Other)
  Sender: FDA-Public Use
  Company Number: None

PATIENT
  Age: 88 Year
  Sex: Male
  Weight: 74.25 kg

DRUGS (10)
  1. PAXLOVID [Suspect]
     Active Substance: NIRMATRELVIR\RITONAVIR
     Indication: COVID-19
     Dosage: OTHER QUANTITY : 3 TABLET(S);?FREQUENCY : TWICE A DAY;?
     Route: 048
     Dates: start: 20220526, end: 20220531
  2. REPATHA [Concomitant]
  3. FINASTERIDE [Concomitant]
  4. MINERALS\VITAMINS [Concomitant]
     Active Substance: MINERALS\VITAMINS
  5. VITAMINS D [Concomitant]
  6. VITAMIN B12 [Concomitant]
     Active Substance: CYANOCOBALAMIN
  7. COENZYME Q10 [Concomitant]
     Active Substance: DIETARY SUPPLEMENT\UBIDECARENONE
  8. TYLENOL [Concomitant]
  9. ASPIRIN [Concomitant]
  10. ALEVE [Concomitant]

REACTIONS (5)
  - Palpitations [None]
  - Arrhythmia [None]
  - Atrial fibrillation [None]
  - Electrocardiogram QT prolonged [None]
  - Feeling abnormal [None]

NARRATIVE: CASE EVENT DATE: 20220601
